FAERS Safety Report 5616593-2 (Version None)
Quarter: 2008Q1

REPORT INFORMATION
  Report Type: 
  Country: None (occurrence: None)
  Receive Date: 20080207
  Receipt Date: 20070907
  Transmission Date: 20080703
  Serious: No
  Sender: FDA-Public Use
  Company Number: A0676640A

PATIENT
  Age: 59 Year
  Sex: Female

DRUGS (2)
  1. PAXIL CR [Suspect]
     Dosage: 25MG PER DAY
     Route: 048
     Dates: start: 20070505
  2. CALCIUM + VIT D [Concomitant]

REACTIONS (4)
  - CHEILITIS [None]
  - LIP BLISTER [None]
  - LIP DRY [None]
  - LIP SWELLING [None]
